FAERS Safety Report 20533155 (Version 1)
Quarter: 2022Q1

REPORT INFORMATION
  Report Type: Spontaneous
  Country: US (occurrence: US)
  Receive Date: 20220301
  Receipt Date: 20220301
  Transmission Date: 20220423
  Serious: Yes (Life-Threatening, Other)
  Sender: FDA-Public Use
  Company Number: US-LUPIN PHARMACEUTICALS INC.-2022-02393

PATIENT
  Sex: Male
  Weight: .75 kg

DRUGS (6)
  1. BETAMETHASONE [Suspect]
     Active Substance: BETAMETHASONE
     Indication: Maternal therapy to enhance foetal lung maturity
     Dosage: 2-DOSE COURSE OF BETAMETHASONE
     Route: 064
  2. AZITHROMYCIN [Suspect]
     Active Substance: AZITHROMYCIN
     Indication: Evidence based treatment
     Dosage: UNK
     Route: 064
  3. AMPICILLIN [Suspect]
     Active Substance: AMPICILLIN
     Indication: Evidence based treatment
     Dosage: UNK (50 MG/KG/DOSE EVERY 12 HOURS)
     Route: 064
  4. AMPICILLIN [Suspect]
     Active Substance: AMPICILLIN
     Dosage: UNK (100 MG/KG EVERY 8 HOURS)
     Route: 064
  5. CLINDAMYCIN [Suspect]
     Active Substance: CLINDAMYCIN
     Indication: Evidence based treatment
     Dosage: UNK
     Route: 064
  6. GENTAMICIN [Suspect]
     Active Substance: GENTAMICIN
     Indication: Evidence based treatment
     Dosage: UNK
     Route: 064

REACTIONS (10)
  - Bronchopulmonary dysplasia [Unknown]
  - Respiratory failure [Unknown]
  - Premature baby [Unknown]
  - Low birth weight baby [Unknown]
  - Thrombocytopenia [Unknown]
  - Hypotension [Unknown]
  - Sepsis [Recovered/Resolved]
  - Pneumonia [Recovered/Resolved]
  - Foetal exposure during pregnancy [Unknown]
  - Klebsiella infection [Recovered/Resolved]
